FAERS Safety Report 14137138 (Version 5)
Quarter: 2018Q1

REPORT INFORMATION
  Report Type: Spontaneous
  Country: JP (occurrence: JP)
  Receive Date: 20171027
  Receipt Date: 20180104
  Transmission Date: 20180508
  Serious: Yes (Death)
  Sender: FDA-Public Use
  Company Number: JP-PFIZER INC-2017462556

PATIENT
  Age: 74 Year
  Sex: Male

DRUGS (5)
  1. IRINOTECAN HCL [Suspect]
     Active Substance: IRINOTECAN HYDROCHLORIDE
     Indication: RECTAL CANCER
     Dosage: UNK UNK, 1X/DAY
     Route: 041
     Dates: start: 201701
  2. LEVOFOLINATE YAKULT [Suspect]
     Active Substance: LEVOLEUCOVORIN CALCIUM
     Indication: RECTAL CANCER
     Dosage: UNK UNK, 1X/DAY
     Route: 041
     Dates: start: 201701
  3. 5-FU [Concomitant]
     Active Substance: FLUOROURACIL
     Dosage: 400 MG/M2, UNK
     Route: 040
     Dates: start: 201701
  4. CYRAMZA [Concomitant]
     Active Substance: RAMUCIRUMAB
     Dosage: 8 MG/KG, UNK
     Dates: start: 201701
  5. 5-FU [Concomitant]
     Active Substance: FLUOROURACIL
     Dosage: 2400 MG/M2, UNK (2400 MG/M2/D1-2)
     Route: 041
     Dates: start: 201701

REACTIONS (1)
  - Death [Fatal]
